FAERS Safety Report 9281592 (Version 2)
Quarter: 2013Q2

REPORT INFORMATION
  Report Type: Report from Study
  Country: CA (occurrence: CA)
  Receive Date: 20130509
  Receipt Date: 20130626
  Transmission Date: 20140414
  Serious: Yes (Hospitalization, Other)
  Sender: FDA-Public Use
  Company Number: CA-ELI_LILLY_AND_COMPANY-CA201304008965

PATIENT
  Age: 83 Year
  Sex: Female

DRUGS (13)
  1. TERIPARATIDE [Suspect]
     Indication: OSTEOPOROSIS
     Dosage: 20 UG, QD
     Route: 058
     Dates: start: 20120302
  2. CLOTRIMADERM [Concomitant]
  3. METROCREAM [Concomitant]
  4. EZETROL [Concomitant]
  5. HYDROCHLOROTHIAZIDE [Concomitant]
  6. ELTROXIN [Concomitant]
  7. CRESTOR [Concomitant]
  8. AGGRENOX [Concomitant]
  9. RATIO-LENOLTEC NO 1 [Concomitant]
  10. OMEGA 3-6-9 [Concomitant]
  11. CALCIUM [Concomitant]
  12. MULTIVITAMIN [Concomitant]
  13. RAMIPRIL [Concomitant]

REACTIONS (4)
  - Fall [Not Recovered/Not Resolved]
  - Skull fracture [Not Recovered/Not Resolved]
  - Haematoma [Not Recovered/Not Resolved]
  - Dizziness [Not Recovered/Not Resolved]
